FAERS Safety Report 10965052 (Version 4)
Quarter: 2017Q4

REPORT INFORMATION
  Report Type: Other
  Country: TW (occurrence: TW)
  Receive Date: 20150330
  Receipt Date: 20171115
  Transmission Date: 20180320
  Serious: Yes (Death, Hospitalization)
  Sender: FDA-Public Use
  Company Number: TW-ACTELION-A-CH2015-114814

PATIENT
  Age: 51 Year
  Sex: Female
  Weight: 56.1 kg

DRUGS (6)
  1. DIGOXIN. [Suspect]
     Active Substance: DIGOXIN
     Dosage: 0.25 MG/ML, SINGLE
     Route: 042
  2. DIGOXIN. [Suspect]
     Active Substance: DIGOXIN
     Indication: PRODUCT USED FOR UNKNOWN INDICATION
     Dosage: 0.125 MG, QOD
     Route: 048
  3. BISOPROLOL [Suspect]
     Active Substance: BISOPROLOL
     Indication: PRODUCT USED FOR UNKNOWN INDICATION
     Dosage: 1.25 MG, UNK
     Route: 048
  4. VENTAVIS [Suspect]
     Active Substance: ILOPROST
     Indication: PULMONARY ARTERIAL HYPERTENSION
     Dosage: UNK
     Route: 055
     Dates: end: 201504
  5. DIGOXIN. [Suspect]
     Active Substance: DIGOXIN
     Dosage: 0.25 MG, QOD
     Route: 048
  6. OPSUMIT [Suspect]
     Active Substance: MACITENTAN
     Indication: PULMONARY ARTERIAL HYPERTENSION
     Dosage: 10 MG, QD
     Route: 048
     Dates: start: 20150218, end: 201504

REACTIONS (23)
  - Concomitant disease progression [Unknown]
  - Fatigue [Not Recovered/Not Resolved]
  - Right ventricular failure [Unknown]
  - Nodal rhythm [Unknown]
  - Heart rate increased [Unknown]
  - Somnolence [Not Recovered/Not Resolved]
  - Asthenia [Not Recovered/Not Resolved]
  - Dyspnoea [Unknown]
  - Oedema peripheral [Unknown]
  - Concomitant disease aggravated [Not Recovered/Not Resolved]
  - Bradycardia [Unknown]
  - Bundle branch block right [Unknown]
  - Renal impairment [Unknown]
  - Blood bilirubin increased [Not Recovered/Not Resolved]
  - Blood potassium decreased [Unknown]
  - Brain natriuretic peptide increased [Unknown]
  - Jaundice [Not Recovered/Not Resolved]
  - Speech disorder [Not Recovered/Not Resolved]
  - Multiple organ dysfunction syndrome [Fatal]
  - Atrial fibrillation [Unknown]
  - Blood creatinine increased [Unknown]
  - Blood urea increased [Unknown]
  - Jugular vein distension [Unknown]

NARRATIVE: CASE EVENT DATE: 20150316
